FAERS Safety Report 6504016-0 (Version None)
Quarter: 2009Q4

REPORT INFORMATION
  Report Type: 
  Country: None (occurrence: None)
  Receive Date: 20091216
  Receipt Date: 20091216
  Transmission Date: 20100525
  Serious: No
  Sender: FDA-Public Use
  Company Number: None

PATIENT
  Age: 68 Year
  Sex: Female

DRUGS (1)
  1. RISPERIDONE [Suspect]
     Dosage: 1 MG 1/2 QD P.O
     Route: 048
     Dates: start: 20090113, end: 20090114

REACTIONS (1)
  - DIARRHOEA [None]
